FAERS Safety Report 4676663-2 (Version None)
Quarter: 2005Q2

REPORT INFORMATION
  Report Type: 
  Country: None (occurrence: None)
  Receive Date: 20050526
  Receipt Date: 20050513
  Transmission Date: 20051028
  Serious: Yes (Hospitalization, Other)
  Sender: FDA-Public Use
  Company Number: 2005075584

PATIENT
  Sex: Female
  Weight: 123.832 kg

DRUGS (6)
  1. CELEBREX [Suspect]
     Indication: ARTHRITIS
     Dosage: 400 MG (200 MG, 2 IN 1 D), ORAL
     Route: 048
  2. ASPIRIN [Concomitant]
  3. ACTOS [Concomitant]
  4. GENERIC LASIX (FUROSEMIDE) [Concomitant]
  5. COREG [Concomitant]
  6. UNKNOWN HEART MEDICATION (CARDIAC THERAPY) [Concomitant]

REACTIONS (11)
  - ANXIETY [None]
  - CARDIAC FAILURE CONGESTIVE [None]
  - CONDITION AGGRAVATED [None]
  - DIFFICULTY IN WALKING [None]
  - DRUG INEFFECTIVE [None]
  - FEELING ABNORMAL [None]
  - INADEQUATE ANALGESIA [None]
  - KNEE ARTHROPLASTY [None]
  - NAUSEA [None]
  - PYREXIA [None]
  - TREMOR [None]
